FAERS Safety Report 10365841 (Version 1)
Quarter: 2014Q3

REPORT INFORMATION
  Report Type: Spontaneous
  Country: US (occurrence: US)
  Receive Date: 20140806
  Receipt Date: 20140806
  Transmission Date: 20150326
  Serious: No
  Sender: FDA-Public Use
  Company Number: US-PFIZER INC-2014215611

PATIENT
  Age: 70 Year
  Sex: Male

DRUGS (1)
  1. INLYTA [Suspect]
     Active Substance: AXITINIB
     Indication: RENAL CELL CARCINOMA
     Dosage: 5 MG, 1 TABLET TWICE DAILY
     Dates: start: 20131120

REACTIONS (4)
  - Nausea [Unknown]
  - Dysphonia [Unknown]
  - Diarrhoea [Unknown]
  - Vomiting [Unknown]
